FAERS Safety Report 12317944 (Version 1)
Quarter: 2016Q2

REPORT INFORMATION
  Report Type: Spontaneous
  Country: US (occurrence: US)
  Receive Date: 20160429
  Receipt Date: 20160429
  Transmission Date: 20160815
  Serious: No
  Sender: FDA-Public Use
  Company Number: US-GLAXOSMITHKLINE-US2016058969

PATIENT
  Sex: Female

DRUGS (1)
  1. ABREVA [Suspect]
     Active Substance: DOCOSANOL
     Indication: PRODUCT USED FOR UNKNOWN INDICATION
     Dosage: UNK
     Dates: start: 20160419

REACTIONS (5)
  - Application site pain [Unknown]
  - Condition aggravated [Unknown]
  - Application site erythema [Unknown]
  - Drug administration error [Unknown]
  - Oral herpes [Unknown]

NARRATIVE: CASE EVENT DATE: 20160419
